FAERS Safety Report 15775468 (Version 3)
Quarter: 2019Q1

REPORT INFORMATION
  Report Type: Spontaneous
  Country: DE (occurrence: DE)
  Receive Date: 20181231
  Receipt Date: 20190222
  Transmission Date: 20190417
  Serious: Yes (Other)
  Sender: FDA-Public Use
  Company Number: DE-ACCORD-098439

PATIENT
  Age: 4 Year
  Sex: Male

DRUGS (8)
  1. TEMOZOLOMIDE. [Suspect]
     Active Substance: TEMOZOLOMIDE
     Indication: CHOROID PLEXUS CARCINOMA
     Dosage: ADDITIONAL DOSE TAKEN
     Route: 037
  2. TEMOZOLAMIDE TEVA [Suspect]
     Active Substance: TEMOZOLOMIDE
     Indication: PRODUCT USED FOR UNKNOWN INDICATION
     Route: 065
  3. CYCLOPHOSPHAMIDE/CYCLOPHOSPHAMIDE MONOHYDRATE [Suspect]
     Active Substance: CYCLOPHOSPHAMIDE
     Indication: CHOROID PLEXUS CARCINOMA
     Route: 062
  4. ETOPOSIDE. [Suspect]
     Active Substance: ETOPOSIDE
     Indication: CHOROID PLEXUS CARCINOMA
     Route: 062
  5. IRINOTECAN [Suspect]
     Active Substance: IRINOTECAN
     Indication: CHOROID PLEXUS CARCINOMA
     Route: 065
  6. PEGYLATED LIPOSOMAL IRINOTECAN [Suspect]
     Active Substance: IRINOTECAN HYDROCHLORIDE
     Indication: CHOROID PLEXUS CARCINOMA
     Route: 065
  7. TOPOTECAN [Suspect]
     Active Substance: TOPOTECAN HYDROCHLORIDE
     Indication: CHOROID PLEXUS CARCINOMA
     Route: 037
  8. VINCRISTINE [Suspect]
     Active Substance: VINCRISTINE
     Indication: CHOROID PLEXUS CARCINOMA
     Route: 062

REACTIONS (4)
  - Off label use [Unknown]
  - Li-Fraumeni syndrome [Unknown]
  - Malignant neoplasm progression [Unknown]
  - Lymphopenia [Unknown]
